FAERS Safety Report 5647004-9 (Version None)
Quarter: 2008Q1

REPORT INFORMATION
  Report Type: 
  Country: None (occurrence: None)
  Receive Date: 20080303
  Receipt Date: 20080225
  Transmission Date: 20080703
  Serious: Yes (Other)
  Sender: FDA-Public Use
  Company Number: B0509496A

PATIENT
  Age: 12 Year
  Sex: Female

DRUGS (1)
  1. AMOXICILLIN + CLAVULANATE POTASSIUM [Suspect]
     Dosage: 2G PER DAY
     Route: 048
     Dates: start: 20080129, end: 20080204

REACTIONS (7)
  - FATIGUE [None]
  - LOCALISED OEDEMA [None]
  - OEDEMA [None]
  - PERIORBITAL OEDEMA [None]
  - PHARMACEUTICAL PRODUCT COMPLAINT [None]
  - RASH MACULO-PAPULAR [None]
  - SYNCOPE [None]
